FAERS Safety Report 4617433-0 (Version None)
Quarter: 2005Q1

REPORT INFORMATION
  Report Type: 
  Country: None (occurrence: None)
  Receive Date: 20050323
  Receipt Date: 20050322
  Transmission Date: 20050727
  Serious: Yes (Other)
  Sender: FDA-Public Use
  Company Number: 004415

PATIENT
  Sex: Male

DRUGS (2)
  1. TRAZODONE HCL (TRAZODONE HYDROCHLORIDE)TABLET [Suspect]
  2. LAMICTAL [Suspect]

REACTIONS (2)
  - DRUG INTERACTION [None]
  - STEVENS-JOHNSON SYNDROME [None]
